FAERS Safety Report 7079114-6 (Version None)
Quarter: 2010Q4

REPORT INFORMATION
  Report Type: 
  Country: None (occurrence: None)
  Receive Date: 20101102
  Receipt Date: 20101027
  Transmission Date: 20110411
  Serious: Yes (Hospitalization)
  Sender: FDA-Public Use
  Company Number: A0796545A

PATIENT
  Age: 58 Year
  Sex: Male
  Weight: 9.1 kg

DRUGS (7)
  1. AVANDIA [Suspect]
     Dosage: 4MG TWICE PER DAY
     Route: 048
     Dates: start: 20060701, end: 20070101
  2. AVANDAMET [Suspect]
     Indication: DIABETES MELLITUS
     Route: 048
     Dates: start: 20050816
  3. LASIX [Concomitant]
  4. PREVACID [Concomitant]
  5. VYTORIN [Concomitant]
  6. ZOCOR [Concomitant]
  7. METFORMIN [Concomitant]
     Dates: start: 20060710

REACTIONS (2)
  - CARDIAC FAILURE CONGESTIVE [None]
  - CORONARY ARTERY DISEASE [None]
